FAERS Safety Report 9847452 (Version 1)
Quarter: 2014Q1

REPORT INFORMATION
  Report Type: Spontaneous
  Country: US (occurrence: US)
  Receive Date: 20140127
  Receipt Date: 20140127
  Transmission Date: 20141002
  Serious: No
  Sender: FDA-Public Use
  Company Number: US-009507513-1401USA006693

PATIENT
  Sex: Female
  Weight: 58.96 kg

DRUGS (4)
  1. ZOCOR [Suspect]
     Indication: BLOOD CHOLESTEROL INCREASED
     Dosage: UNK
     Route: 048
     Dates: start: 2012, end: 2012
  2. ASPIRIN [Concomitant]
     Dosage: 325 MG, UNK
  3. NIACIN [Concomitant]
  4. VITAMINS (UNSPECIFIED) [Concomitant]

REACTIONS (3)
  - Pain in extremity [Unknown]
  - Myalgia [Unknown]
  - Muscle spasms [Unknown]
